FAERS Safety Report 4986756-8 (Version None)
Quarter: 2006Q2

REPORT INFORMATION
  Report Type: 
  Country: None (occurrence: None)
  Receive Date: 20060428
  Receipt Date: 20050408
  Transmission Date: 20061013
  Serious: Yes (Hospitalization, Other)
  Sender: FDA-Public Use
  Company Number: US-MERCK-0504USA01310

PATIENT
  Age: 73 Year
  Sex: Female
  Weight: 95 kg

DRUGS (8)
  1. VIOXX [Suspect]
     Indication: ARTHRALGIA
     Route: 048
     Dates: start: 20011101
  2. VIOXX [Suspect]
     Indication: BACK PAIN
     Route: 048
     Dates: start: 20011101
  3. ROBAXIN [Concomitant]
     Route: 065
  4. K-DUR 10 [Concomitant]
     Route: 065
  5. NAPROXEN [Concomitant]
     Route: 065
  6. TYLENOL (CAPLET) [Concomitant]
     Route: 065
  7. VIOXX [Suspect]
     Route: 048
     Dates: start: 20011101, end: 20030201
  8. VIOXX [Suspect]
     Route: 048
     Dates: start: 20011101, end: 20030201

REACTIONS (26)
  - ANAEMIA [None]
  - ANGINA PECTORIS [None]
  - CARDIAC DISORDER [None]
  - CEREBROVASCULAR ACCIDENT [None]
  - CHEST DISCOMFORT [None]
  - CHEST PAIN [None]
  - CORONARY ARTERY DISEASE [None]
  - DIZZINESS [None]
  - DYSPNOEA [None]
  - GASTRITIS [None]
  - GASTROINTESTINAL HAEMORRHAGE [None]
  - HEADACHE [None]
  - HYPERCHOLESTEROLAEMIA [None]
  - HYPERHIDROSIS [None]
  - HYPERLIPIDAEMIA [None]
  - HYPERTENSION [None]
  - INFLAMMATION [None]
  - MUSCLE SPASMS [None]
  - MYOCARDIAL INFARCTION [None]
  - NAUSEA [None]
  - OEDEMA PERIPHERAL [None]
  - ORGAN FAILURE [None]
  - PAIN IN EXTREMITY [None]
  - PULMONARY EMBOLISM [None]
  - THROMBOSIS [None]
  - TRIGEMINAL NEURALGIA [None]
